FAERS Safety Report 6017307-7 (Version None)
Quarter: 2008Q4

REPORT INFORMATION
  Report Type: 
  Country: None (occurrence: None)
  Receive Date: 20081219
  Receipt Date: 20081203
  Transmission Date: 20090506
  Serious: Yes (Hospitalization)
  Sender: FDA-Public Use
  Company Number: 20736

PATIENT
  Age: 47 Year
  Sex: Female

DRUGS (3)
  1. METHOTREXATE [Suspect]
  2. HUMIRA [Suspect]
     Indication: RHEUMATOID ARTHRITIS
     Dosage: 40 MG SC
     Route: 058
     Dates: start: 20060501, end: 20081027
  3. PREDNISOLONE [Concomitant]

REACTIONS (1)
  - BURSITIS INFECTIVE STAPHYLOCOCCAL [None]
